FAERS Safety Report 9290879 (Version 1)
Quarter: 2013Q2

REPORT INFORMATION
  Report Type: Spontaneous
  Country: US (occurrence: None)
  Receive Date: 20130514
  Receipt Date: 20130514
  Transmission Date: 20140414
  Serious: Yes (Other)
  Sender: FDA-Public Use
  Company Number: None

PATIENT
  Age: 56 Year
  Sex: Female
  Weight: 66.68 kg

DRUGS (2)
  1. VENLAFAXINE [Suspect]
     Indication: MAJOR DEPRESSION
     Dosage: 150 MG 2 TABS, BID, PO
     Dates: start: 20010201, end: 20010601
  2. VENLAFAXINE [Suspect]
     Indication: GENERALISED ANXIETY DISORDER
     Dosage: 150 MG 2 TABS, BID, PO
     Dates: start: 20010201, end: 20010601

REACTIONS (3)
  - Product substitution issue [None]
  - Depression [None]
  - No therapeutic response [None]
